FAERS Safety Report 9434750 (Version 1)
Quarter: 2013Q3

REPORT INFORMATION
  Report Type: Spontaneous
  Country: US (occurrence: US)
  Receive Date: 20130801
  Receipt Date: 20130801
  Transmission Date: 20140515
  Serious: No
  Sender: FDA-Public Use
  Company Number: US-TEVA-422561USA

PATIENT
  Sex: Female
  Weight: 70.37 kg

DRUGS (5)
  1. NUVIGIL [Suspect]
     Dates: start: 200906
  2. CYMBALTA [Concomitant]
     Indication: DEPRESSION
  3. BUPROPION [Concomitant]
     Indication: DEPRESSION
  4. TOPAMAX [Concomitant]
     Indication: MIGRAINE
  5. LIPITOR [Concomitant]
     Indication: HYPERCHOLESTEROLAEMIA

REACTIONS (2)
  - Therapeutic response unexpected [Not Recovered/Not Resolved]
  - Therapeutic response unexpected [Not Recovered/Not Resolved]
